FAERS Safety Report 9522391 (Version 1)
Quarter: 2013Q1

REPORT INFORMATION
  Report Type: Spontaneous
  Country: US (occurrence: None)
  Receive Date: 20130305
  Receipt Date: 20130305
  Transmission Date: 20140127
  Serious: Yes (Other)
  Sender: FDA-Public Use
  Company Number: 163-21880-12063758

PATIENT
  Age: 71 Year
  Sex: Male

DRUGS (17)
  1. REVLIMID [Suspect]
     Indication: PLASMA CELL MYELOMA
     Dosage: 25 MG, 1 IN 1 D, PO
     Route: 048
     Dates: start: 20100618, end: 2010
  2. ALBUTEROL (SALBUTAMOL) [Concomitant]
  3. ASPIRIN (ACETYLSALICYLIC ACID) [Concomitant]
  4. ATIVAN (LORAZEPAM) [Concomitant]
  5. CALCIUM (CALCIUM) [Concomitant]
  6. CINNAMON (CINNAMOMUM VERUM) [Concomitant]
  7. COLACE (DOCUSATE SODIUM) [Concomitant]
  8. COREG (CARVEDILOL) [Concomitant]
  9. DILAUDID (HYDROMORPHONE HYDROCHLORIDE) [Concomitant]
  10. LANOXIN (DIGOXIN) [Concomitant]
  11. LASIX (FUROSEMIDE) [Concomitant]
  12. METFORMIN (METFORMIN) [Concomitant]
  13. MS CONTIN [Concomitant]
  14. VITAMINS [Concomitant]
  15. ONDANSETRON (ONDANSETRON) [Concomitant]
  16. PROCHLORPERAZINE MALEATE (PROCHLORPERAZINE MALEATE) [Concomitant]
  17. SENNA [Concomitant]

REACTIONS (3)
  - Platelet count decreased [None]
  - White blood cell count decreased [None]
  - Plasma cell myeloma [None]
